FAERS Safety Report 13928315 (Version 3)
Quarter: 2017Q4

REPORT INFORMATION
  Report Type: Report from Study
  Country: US (occurrence: US)
  Receive Date: 20170901
  Receipt Date: 20171201
  Transmission Date: 20180320
  Serious: Yes (Other)
  Sender: FDA-Public Use
  Company Number: US-TARO-2017TAR00712

PATIENT
  Age: 76 Year
  Sex: Female
  Weight: 140 kg

DRUGS (9)
  1. METROPROLOL SUCCINATE [Concomitant]
     Dosage: 25 MG, 2X/DAY
     Route: 048
  2. CYANOCOBALAMIN (VITAMIN B12) [Concomitant]
     Dosage: 1000 ?G, 1X/DAY
     Route: 048
  3. LISINOPRIL. [Concomitant]
     Active Substance: LISINOPRIL
     Dosage: 20 MG, 1X/DAY
     Route: 048
  4. HYDROCHLOROTHIAZIDE. [Concomitant]
     Active Substance: HYDROCHLOROTHIAZIDE
     Dosage: 12.5 MG, 1X/DAY
  5. CHOLECALCIFEROL (VITAMIN D3) [Concomitant]
     Dosage: 2000 IU, 1X/DAY
     Route: 048
  6. ASPIRIN CHEW [Concomitant]
     Dosage: 81 MG, 1X/DAY
     Route: 048
  7. OMEPRAZOLE. [Concomitant]
     Active Substance: OMEPRAZOLE
     Dosage: 20 MG, 1X/DAY
     Route: 048
  8. ATORVASTATIN [Concomitant]
     Active Substance: ATORVASTATIN
     Dosage: 10 MG, 1X/DAY AT BEDTIME
     Route: 048
  9. PLACEBO [Suspect]
     Active Substance: UNSPECIFIED INGREDIENT
     Dosage: UNK, 2X/DAY
     Route: 061
     Dates: start: 20170814, end: 20170821

REACTIONS (1)
  - Pneumonia [Not Recovered/Not Resolved]

NARRATIVE: CASE EVENT DATE: 20170817
